FAERS Safety Report 18451322 (Version 1)
Quarter: 2020Q4

REPORT INFORMATION
  Report Type: Spontaneous
  Country: US (occurrence: US)
  Receive Date: 20201102
  Receipt Date: 20201102
  Transmission Date: 20210114
  Serious: Yes (Hospitalization, Other)
  Sender: FDA-Public Use
  Company Number: US-MACLEODS PHARMACEUTICALS US LTD-MAC2020028862

PATIENT

DRUGS (3)
  1. OLANZAPINE 2.5 MG [Suspect]
     Active Substance: OLANZAPINE
     Indication: BEHAVIOUR DISORDER
     Dosage: 2.5 MILLIGRAM, QD
     Route: 065
  2. LITHIUM. [Suspect]
     Active Substance: LITHIUM
     Indication: BEHAVIOUR DISORDER
     Dosage: 300 MILLIGRAM, BID
     Route: 065
  3. SERTRALINE [Concomitant]
     Active Substance: SERTRALINE HYDROCHLORIDE
     Indication: BEHAVIOUR DISORDER
     Dosage: 100 MILLIGRAM, QD, EVERY MORNING
     Route: 065

REACTIONS (3)
  - Influenza [Unknown]
  - ECG signs of myocardial infarction [Recovering/Resolving]
  - Rhabdomyolysis [Recovering/Resolving]
